FAERS Safety Report 8194681 (Version 2)
Quarter: 2018Q2

REPORT INFORMATION
  Report Type: Spontaneous
  Country: TR (occurrence: TR)
  Receive Date: 20111024
  Receipt Date: 20180607
  Transmission Date: 20180711
  Serious: Yes (Congenital Anomaly)
  Sender: FDA-Public Use
  Company Number: TR-ELI_LILLY_AND_COMPANY-TR201110003460

PATIENT
  Age: 0 Year

DRUGS (4)
  1. ALFAMET [Concomitant]
     Active Substance: METHYLDOPA
     Dosage: UNK
     Route: 015
     Dates: end: 20110119
  2. ALFAMET [Concomitant]
     Active Substance: METHYLDOPA
     Dosage: UNK
     Route: 015
     Dates: end: 20110119
  3. HUMULIN N [Suspect]
     Active Substance: INSULIN HUMAN
     Indication: DIABETES MELLITUS
     Dosage: UNK
     Route: 015
     Dates: start: 201008, end: 20110119
  4. HUMULIN N [Suspect]
     Active Substance: INSULIN HUMAN
     Indication: DIABETES MELLITUS
     Dosage: UNK
     Route: 015
     Dates: start: 201008, end: 20110119

REACTIONS (3)
  - Congenital hand malformation [Unknown]
  - Foetal exposure during pregnancy [Recovered/Resolved]
  - Limb malformation [Unknown]

NARRATIVE: CASE EVENT DATE: 201008
